FAERS Safety Report 19498746 (Version 1)
Quarter: 2021Q3

REPORT INFORMATION
  Report Type: Spontaneous
  Country: US (occurrence: US)
  Receive Date: 20210706
  Receipt Date: 20210706
  Transmission Date: 20211014
  Serious: Yes (Other)
  Sender: FDA-Public Use
  Company Number: US-CELGENEUS-USA-20210608697

PATIENT

DRUGS (2)
  1. AVELUMAB [Concomitant]
     Active Substance: AVELUMAB
     Indication: ACUTE MYELOID LEUKAEMIA REFRACTORY
     Dosage: 3 MILLIGRAM/KILOGRAM
     Route: 041
  2. AZACITIDINE. [Suspect]
     Active Substance: AZACITIDINE
     Indication: ACUTE MYELOID LEUKAEMIA REFRACTORY
     Dosage: 75 MILLIGRAM/SQ. METER
     Route: 065

REACTIONS (1)
  - Diarrhoea [Recovered/Resolved]
